FAERS Safety Report 9837461 (Version 1)
Quarter: 2014Q1

REPORT INFORMATION
  Report Type: Spontaneous
  Country: US (occurrence: US)
  Receive Date: 20140123
  Receipt Date: 20140123
  Transmission Date: 20141002
  Serious: Yes (Other)
  Sender: FDA-Public Use
  Company Number: US-MYLANLABS-2014S1000883

PATIENT
  Age: 68 Year
  Sex: Female
  Weight: 113.4 kg

DRUGS (6)
  1. BUPROPION HYDROCHLORIDE EXTENDED-RELEASE TABLETS USP (XL) [Suspect]
     Indication: DEPRESSION
     Route: 048
     Dates: start: 201311, end: 20140106
  2. EFFEXOR [Concomitant]
  3. LEVOTHYROXINE [Concomitant]
  4. KELP /01045501/ [Concomitant]
  5. FLAX SEED OIL [Concomitant]
  6. FISH OIL [Concomitant]

REACTIONS (6)
  - Suicidal ideation [Recovered/Resolved]
  - Mental impairment [Recovered/Resolved]
  - Crying [Recovered/Resolved]
  - Depressed mood [Recovered/Resolved]
  - Personality change [Recovered/Resolved]
  - Unevaluable event [Recovered/Resolved]
